FAERS Safety Report 22259092 (Version 4)
Quarter: 2023Q4

REPORT INFORMATION
  Report Type: Report from Study
  Country: US (occurrence: US)
  Receive Date: 20230427
  Receipt Date: 20231006
  Transmission Date: 20240109
  Serious: No
  Sender: FDA-Public Use
  Company Number: US-002147023-NVSC2023US093306

PATIENT
  Sex: Female

DRUGS (1)
  1. LEQVIO [Suspect]
     Active Substance: INCLISIRAN SODIUM
     Indication: Arteriosclerosis
     Dosage: 284 MG/KG (DAY 1, 90, 180, 180)
     Route: 058

REACTIONS (3)
  - Arthralgia [Unknown]
  - Weight decreased [Unknown]
  - Blood cholesterol increased [Unknown]
